FAERS Safety Report 8445581-6 (Version None)
Quarter: 2012Q2

REPORT INFORMATION
  Report Type: 
  Country: None (occurrence: None)
  Receive Date: 20120618
  Receipt Date: 20120604
  Transmission Date: 20120825
  Serious: No
  Sender: FDA-Public Use
  Company Number: US-ASTRAZENECA-2012SE22143

PATIENT
  Age: 55 Year
  Sex: Female

DRUGS (1)
  1. SYMBICORT [Suspect]
     Indication: CHRONIC OBSTRUCTIVE PULMONARY DISEASE
     Dosage: 160/4.5 MCG, TWO PUFFS, EVERY 12 HOURS
     Route: 055
     Dates: start: 20120222

REACTIONS (4)
  - DRUG DOSE OMISSION [None]
  - SPUTUM INCREASED [None]
  - COUGH [None]
  - PRODUCTIVE COUGH [None]
